FAERS Safety Report 12714398 (Version 1)
Quarter: 2016Q3

REPORT INFORMATION
  Report Type: Spontaneous
  Country: US (occurrence: US)
  Receive Date: 20160905
  Receipt Date: 20160905
  Transmission Date: 20161109
  Serious: No
  Sender: FDA-Public Use
  Company Number: US-JAZZ-2016-US-009040

PATIENT
  Sex: Female

DRUGS (22)
  1. XYREM [Suspect]
     Active Substance: SODIUM OXYBATE
     Indication: FIBROMYALGIA
     Dosage: 2.25 G, BID
     Route: 048
     Dates: start: 200705
  2. GABAPENTIN. [Concomitant]
     Active Substance: GABAPENTIN
  3. XANAX [Concomitant]
     Active Substance: ALPRAZOLAM
  4. AMLODIPINE BESYLATE. [Concomitant]
     Active Substance: AMLODIPINE BESYLATE
  5. PERCOCET [Concomitant]
     Active Substance: ACETAMINOPHEN\OXYCODONE HYDROCHLORIDE
  6. ZANAFLEX [Concomitant]
     Active Substance: TIZANIDINE HYDROCHLORIDE
  7. SYNTHROID [Concomitant]
     Active Substance: LEVOTHYROXINE SODIUM
  8. VOLTAREN EC [Concomitant]
  9. INDOMETHACIN. [Concomitant]
     Active Substance: INDOMETHACIN
  10. LISINOPRIL. [Concomitant]
     Active Substance: LISINOPRIL
  11. CYMBALTA [Concomitant]
     Active Substance: DULOXETINE HYDROCHLORIDE
  12. NUVIGIL [Concomitant]
     Active Substance: ARMODAFINIL
  13. ARMOUR THYROID [Concomitant]
     Active Substance: THYROID, PORCINE
  14. VICODIN [Concomitant]
     Active Substance: ACETAMINOPHEN\HYDROCODONE BITARTRATE
  15. NEXIUM [Concomitant]
     Active Substance: ESOMEPRAZOLE MAGNESIUM
  16. SEROQUEL [Concomitant]
     Active Substance: QUETIAPINE FUMARATE
  17. SUCRALOSE [Concomitant]
     Active Substance: SUCRALOSE
  18. TOVIAZ [Concomitant]
     Active Substance: FESOTERODINE FUMARATE
  19. LANSOPRAZOLE DR [Concomitant]
  20. VESICARE [Concomitant]
     Active Substance: SOLIFENACIN SUCCINATE
  21. ATENOLOL. [Concomitant]
     Active Substance: ATENOLOL
  22. SINGULAIR [Concomitant]
     Active Substance: MONTELUKAST SODIUM

REACTIONS (1)
  - Memory impairment [Not Recovered/Not Resolved]
